FAERS Safety Report 22168158 (Version 6)
Quarter: 2023Q2

REPORT INFORMATION
  Report Type: Report from Study
  Country: US (occurrence: US)
  Receive Date: 20230403
  Receipt Date: 20230609
  Transmission Date: 20230721
  Serious: Yes (Hospitalization, Other)
  Sender: FDA-Public Use
  Company Number: US-002147023-NVSC2023US074248

PATIENT
  Age: 68 Year
  Sex: Male
  Weight: 69.841 kg

DRUGS (4)
  1. TREPROSTINIL [Suspect]
     Active Substance: TREPROSTINIL
     Indication: Pulmonary arterial hypertension
     Dosage: 111 NG/KG/MIN, CONT
     Route: 042
     Dates: start: 20190422
  2. TREPROSTINIL [Suspect]
     Active Substance: TREPROSTINIL
     Dosage: 111 NG/KG/MIN, CONT
     Route: 042
  3. WARFARIN [Concomitant]
     Active Substance: WARFARIN
     Indication: Product used for unknown indication
     Dosage: UNK
     Route: 065
  4. DILTIAZEM [Concomitant]
     Active Substance: DILTIAZEM
     Indication: Product used for unknown indication
     Dosage: UNK
     Route: 065

REACTIONS (5)
  - Pneumonia [Not Recovered/Not Resolved]
  - Cough [Unknown]
  - Cardiac failure congestive [Unknown]
  - Bacterial infection [Unknown]
  - Device dislocation [Unknown]

NARRATIVE: CASE EVENT DATE: 20230301
